FAERS Safety Report 8603349-1 (Version None)
Quarter: 2012Q3

REPORT INFORMATION
  Report Type: 
  Country: None (occurrence: None)
  Receive Date: 20120806
  Receipt Date: 20120719
  Transmission Date: 20120928
  Serious: Yes (Other)
  Sender: FDA-Public Use
  Company Number: FK201202033

PATIENT
  Age: 68 Year
  Sex: Female
  Weight: 84 kg

DRUGS (24)
  1. FLUDROCORTISONE ACETATE [Concomitant]
  2. DYAZIDE [Concomitant]
  3. GABITRIL [Concomitant]
  4. FOSAMAX [Concomitant]
  5. HYDROMORPHONE HYDROCHLORIDE [Concomitant]
  6. CALCIUM [Concomitant]
  7. OMEPRAZOLE [Concomitant]
  8. PAROXETINE HCL [Concomitant]
  9. LIPITOR [Concomitant]
  10. LEVOTHYROXINE SODIUM [Concomitant]
  11. SUCCINYLCHOLINE CHLORIDE [Concomitant]
  12. MULTI-VITAMINS [Concomitant]
  13. GABAPENTIN [Concomitant]
  14. ONDANSETRON [Suspect]
     Indication: PRODUCT USED FOR UNKNOWN INDICATION
     Dosage: 4MG
  15. BUPROPION HCL [Concomitant]
  16. SENNA-MINT WAF [Concomitant]
  17. CLONAZEPAM [Concomitant]
  18. PROPOFOL [Concomitant]
  19. FENTANYL [Suspect]
     Indication: INDUCTION OF ANAESTHESIA
     Dosage: 100 UG : 50 UG : 100 UG
  20. FENTANYL [Suspect]
     Indication: PAIN
     Dosage: 100 UG : 50 UG : 100 UG
  21. DULOXETINE HYDROCHLORIDE [Concomitant]
  22. LISINOPRIL [Concomitant]
  23. OXYCODONE HCL [Concomitant]
  24. DESFLURANE [Concomitant]

REACTIONS (6)
  - OXYGEN SATURATION DECREASED [None]
  - CONFUSIONAL STATE [None]
  - APNOEA [None]
  - UNRESPONSIVE TO STIMULI [None]
  - SEROTONIN SYNDROME [None]
  - AGITATION [None]
